FAERS Safety Report 11475205 (Version 1)
Quarter: 2015Q3

REPORT INFORMATION
  Report Type: Spontaneous
  Country: US (occurrence: None)
  Receive Date: 20150902
  Receipt Date: 20150902
  Transmission Date: 20151125
  Serious: Yes (Hospitalization)
  Sender: FDA-Public Use
  Company Number: A-US2015-113576

PATIENT
  Age: 22 Year
  Sex: Female
  Weight: 98 kg

DRUGS (3)
  1. VELETRI [Suspect]
     Active Substance: EPOPROSTENOL
     Indication: PULMONARY HYPERTENSION
     Dosage: 25 NG/KG, PER MIN
     Route: 042
     Dates: start: 20150129
  2. REVATIO (SILDENAFIL CITRATE) [Concomitant]
  3. COUMADIN [Concomitant]
     Active Substance: WARFARIN SODIUM

REACTIONS (17)
  - Feeling abnormal [None]
  - Headache [None]
  - Anxiety [None]
  - International normalised ratio increased [None]
  - Contusion [None]
  - Fatigue [None]
  - Malaise [None]
  - Thrombosis in device [None]
  - Catheter site haemorrhage [None]
  - Dizziness [None]
  - Hyperhidrosis [None]
  - Device infusion issue [None]
  - Device leakage [None]
  - Dyspnoea [None]
  - Device malfunction [None]
  - Medical device change [None]
  - Pain in jaw [None]

NARRATIVE: CASE EVENT DATE: 20150326
